FAERS Safety Report 23352398 (Version 2)
Quarter: 2024Q1

REPORT INFORMATION
  Report Type: Report from Study
  Country: US (occurrence: US)
  Receive Date: 20231229
  Receipt Date: 20240108
  Transmission Date: 20240409
  Serious: Yes (Death, Other)
  Sender: FDA-Public Use
  Company Number: US-GILEAD-2023-0656668

PATIENT
  Age: 13 Year
  Sex: Male

DRUGS (31)
  1. AZTREONAM LYSINE [Suspect]
     Active Substance: AZTREONAM LYSINE
     Indication: Product used for unknown indication
     Dosage: INHALE 75 MG 3 TIMES DAILY 28 DAYS ON AND 28 DAYS OFF
     Route: 055
  2. AMBRISENTAN [Concomitant]
     Active Substance: AMBRISENTAN
  3. ZINC [Concomitant]
     Active Substance: PYRITHIONE ZINC\ZINC\ZINC CHLORIDE
  4. GABAPENTIN [Concomitant]
     Active Substance: GABAPENTIN
  5. VENTAVIS [Concomitant]
     Active Substance: ILOPROST
  6. CYPROHEPTADINE [Concomitant]
     Active Substance: CYPROHEPTADINE
  7. ASPIRIN [Concomitant]
     Active Substance: ASPIRIN
  8. PREDNISONE [Concomitant]
     Active Substance: PREDNISONE
  9. MOXIFLOXACIN [Concomitant]
     Active Substance: MOXIFLOXACIN
  10. CLONIDINE [Concomitant]
     Active Substance: CLONIDINE
  11. BIFIDOBACTERIUM ANIMALIS LACTIS [Concomitant]
     Active Substance: BIFIDOBACTERIUM ANIMALIS LACTIS
  12. LEVOTHYROXINE [Concomitant]
     Active Substance: LEVOTHYROXINE
  13. LASIX [Concomitant]
     Active Substance: FUROSEMIDE
  14. DULERA [Concomitant]
     Active Substance: FORMOTEROL FUMARATE DIHYDRATE\MOMETASONE FUROATE
  15. KEPPRA [Concomitant]
     Active Substance: LEVETIRACETAM
  16. CIPRODEX [Concomitant]
     Active Substance: CIPROFLOXACIN HYDROCHLORIDE\DEXAMETHASONE
  17. SENNA S [Concomitant]
     Active Substance: DOCUSATE SODIUM\SENNA LEAF
  18. DOCUSATE CALCIUM [Concomitant]
     Active Substance: DOCUSATE CALCIUM
  19. SODIUM CHLORIDE [Concomitant]
     Active Substance: SODIUM CHLORIDE
  20. IBUPROFEN [Concomitant]
     Active Substance: IBUPROFEN
  21. FLOVENT [Concomitant]
     Active Substance: FLUTICASONE PROPIONATE
  22. FUROSEMIDE [Concomitant]
     Active Substance: FUROSEMIDE
  23. CULTURELLE [Concomitant]
     Active Substance: LACTOBACILLUS RHAMNOSUS
  24. FLUTICASONE [Concomitant]
     Active Substance: FLUTICASONE
  25. ALBUTEROL SULFATE [Concomitant]
     Active Substance: ALBUTEROL SULFATE
  26. OXYGEN [Concomitant]
     Active Substance: OXYGEN
  27. REVATIO [Concomitant]
     Active Substance: SILDENAFIL CITRATE
  28. COCONUT OIL [Concomitant]
     Active Substance: COCONUT OIL
  29. VITAMINS NOS [Concomitant]
     Active Substance: VITAMINS
  30. SODIUM FLUORIDE [Concomitant]
     Active Substance: SODIUM FLUORIDE\SODIUM MONOFLUOROPHOSPHATE
  31. FLUTICASONE PROPIONATE [Concomitant]
     Active Substance: FLUTICASONE PROPIONATE

REACTIONS (2)
  - Death [Fatal]
  - Off label use [Unknown]

NARRATIVE: CASE EVENT DATE: 20231225
